FAERS Safety Report 7232730-0 (Version None)
Quarter: 2011Q1

REPORT INFORMATION
  Report Type: 
  Country: None (occurrence: None)
  Receive Date: 20110107
  Receipt Date: 20101223
  Transmission Date: 20110831
  Serious: Yes (Hospitalization)
  Sender: FDA-Public Use
  Company Number: 2010005599

PATIENT
  Age: 50 Year
  Sex: Female
  Weight: 66.6788 kg

DRUGS (8)
  1. FUROSEMIDE (FUROSEMIDE) [Concomitant]
  2. OSI-906 [Suspect]
     Indication: BREAST CANCER
     Dosage: 450 MG, QD DAYS 1-3 EVERY 7 DAYS
     Dates: start: 20100524, end: 20100525
  3. ZOFRAN [Concomitant]
  4. LISINOPRIL [Concomitant]
  5. ALBUTEROL [Concomitant]
  6. ERLOTINIB HYDROCHLORIDE [Suspect]
     Indication: BREAST CANCER
     Dosage: 150 MG, QD 1-21, ORAL
     Route: 048
     Dates: start: 20100525, end: 20100525
  7. ATIVAN [Concomitant]
  8. LASIX [Concomitant]

REACTIONS (1)
  - ELECTROCARDIOGRAM QT PROLONGED [None]
